FAERS Safety Report 9342628 (Version 1)
Quarter: 2013Q2

REPORT INFORMATION
  Report Type: Spontaneous
  Country: FR (occurrence: FR)
  Receive Date: 20130611
  Receipt Date: 20130611
  Transmission Date: 20140414
  Serious: Yes (Death, Hospitalization)
  Sender: FDA-Public Use
  Company Number: FR-TEVA-411407ISR

PATIENT
  Age: 92 Year
  Sex: Female

DRUGS (4)
  1. FUROSEMIDE TEVA [Suspect]
  2. COUMADINE [Concomitant]
  3. CORVASAL [Concomitant]
  4. DIFFU K [Concomitant]

REACTIONS (5)
  - Death [Fatal]
  - Urinary retention [Unknown]
  - Somnolence [Unknown]
  - Blood urea increased [Unknown]
  - Blood creatinine increased [Unknown]
